FAERS Safety Report 19022528 (Version 1)
Quarter: 2021Q1

REPORT INFORMATION
  Report Type: Spontaneous
  Country: US (occurrence: US)
  Receive Date: 20210318
  Receipt Date: 20210318
  Transmission Date: 20210420
  Serious: No
  Sender: FDA-Public Use
  Company Number: US-ELI_LILLY_AND_COMPANY-US202102008959

PATIENT
  Age: 70 Year
  Sex: Female

DRUGS (3)
  1. BASAGLAR [Interacting]
     Active Substance: INSULIN GLARGINE
     Dosage: 28 U, EACH MORNING
     Route: 058
     Dates: start: 20210211
  2. BASAGLAR [Suspect]
     Active Substance: INSULIN GLARGINE
     Indication: TYPE 2 DIABETES MELLITUS
     Dosage: 26 U, EACH MORNING
     Route: 058
     Dates: start: 20210119
  3. NOVOLOG [Interacting]
     Active Substance: INSULIN ASPART
     Indication: DIABETES MELLITUS
     Dosage: 7 U, UNKNOWN
     Route: 065

REACTIONS (4)
  - Skin discolouration [Unknown]
  - Peripheral coldness [Unknown]
  - Drug interaction [Unknown]
  - Peripheral swelling [Unknown]

NARRATIVE: CASE EVENT DATE: 20210214
